FAERS Safety Report 25729250 (Version 3)
Quarter: 2025Q3

REPORT INFORMATION
  Report Type: Spontaneous
  Country: GT (occurrence: GT)
  Receive Date: 20250827
  Receipt Date: 20250909
  Transmission Date: 20251021
  Serious: Yes (Disabling)
  Sender: ROCHE
  Company Number: GT-ROCHE-10000356934

PATIENT
  Age: 52 Year
  Sex: Female

DRUGS (6)
  1. AVASTIN [Suspect]
     Active Substance: BEVACIZUMAB
     Indication: Diabetic retinopathy
     Dosage: DOSE: 1.25 MG/DL, 1 DOSE EVERY 4 WEEKS.?AVASTIN 100 MG/4 ML (BEVACIZUMAB)
     Route: 050
     Dates: start: 20250717
  2. AVASTIN [Suspect]
     Active Substance: BEVACIZUMAB
     Indication: Diabetic retinal oedema
  3. TRIAMCINOLONE [Concomitant]
     Active Substance: TRIAMCINOLONE
     Indication: Product used for unknown indication
  4. PREDNISONE ACETATE [Concomitant]
     Active Substance: PREDNISONE ACETATE
     Indication: Product used for unknown indication
     Dosage: DOSE WAS NOT REPORTED
  5. DEXAMETHASONE;MOXIFLOXACIN [Concomitant]
  6. PHENYLEPHRINE\TROPICAMIDE [Concomitant]
     Active Substance: PHENYLEPHRINE\TROPICAMIDE

REACTIONS (14)
  - Visual acuity reduced [Recovered/Resolved]
  - Eye pain [Recovered/Resolved]
  - Conjunctival hyperaemia [Unknown]
  - Corneal disorder [Unknown]
  - Anterior chamber cell [Unknown]
  - Hypotony of eye [Unknown]
  - Vitreal cells [Unknown]
  - Off label use [Unknown]
  - Hyperaemia [Unknown]
  - Corneal striae [Unknown]
  - Choroiditis [Unknown]
  - Retinal ischaemia [Unknown]
  - Blindness [Unknown]
  - Pain [Unknown]

NARRATIVE: CASE EVENT DATE: 20250717
